FAERS Safety Report 5117585-2 (Version None)
Quarter: 2006Q3

REPORT INFORMATION
  Report Type: 
  Country: None (occurrence: None)
  Receive Date: 20060929
  Receipt Date: 20060919
  Transmission Date: 20061208
  Serious: Yes (Death, Life-Threatening, Hospitalization, Disabling)
  Sender: FDA-Public Use
  Company Number: MY-JNJFOC-20060803625

PATIENT
  Age: 8 Decade
  Sex: Female

DRUGS (12)
  1. REMICADE [Suspect]
     Indication: MEGACOLON
     Route: 042
  2. REMICADE [Suspect]
     Indication: INFLAMMATORY BOWEL DISEASE
     Dosage: 2 VIALS
     Route: 042
  3. STEROID [Concomitant]
  4. TPN [Concomitant]
  5. AZATHIOPRINE [Concomitant]
  6. AZATHIOPRINE [Concomitant]
  7. ENOXAPARIN SODIUM [Concomitant]
     Route: 058
  8. CETIPRIN [Concomitant]
  9. HYDROCORTISONE [Concomitant]
  10. METHIMAZOLE [Concomitant]
  11. VANCOMYCIN [Concomitant]
  12. AMPHOTERICIN B [Concomitant]

REACTIONS (4)
  - DEEP VEIN THROMBOSIS [None]
  - FUNGAL SEPSIS [None]
  - INFLAMMATORY BOWEL DISEASE [None]
  - PNEUMONIA [None]
